FAERS Safety Report 5550683-8 (Version None)
Quarter: 2007Q4

REPORT INFORMATION
  Report Type: 
  Country: None (occurrence: None)
  Receive Date: 20071212
  Receipt Date: 20070508
  Transmission Date: 20080405
  Serious: No
  Sender: FDA-Public Use
  Company Number: US-AMGEN-KDL223661

PATIENT
  Sex: Female

DRUGS (2)
  1. ENBREL [Suspect]
     Indication: SPONDYLOARTHROPATHY
     Route: 058
     Dates: start: 20060301
  2. AZULFIDINE EN-TABS [Concomitant]
     Dates: start: 20060101

REACTIONS (4)
  - BODY TEMPERATURE INCREASED [None]
  - EAR INFECTION [None]
  - PHARYNGITIS STREPTOCOCCAL [None]
  - SINUS CONGESTION [None]
